FAERS Safety Report 8263467-7 (Version None)
Quarter: 2012Q2

REPORT INFORMATION
  Report Type: 
  Country: None (occurrence: None)
  Receive Date: 20120405
  Receipt Date: 20120327
  Transmission Date: 20120825
  Serious: Yes (Hospitalization, Other)
  Sender: FDA-Public Use
  Company Number: US-ABBOTT-12P-163-0920563-00

PATIENT
  Sex: Male

DRUGS (1)
  1. SYNTHROID [Suspect]
     Indication: THYROIDECTOMY

REACTIONS (6)
  - GASTROINTESTINAL DISORDER [None]
  - GASTROSTOMY TUBE INSERTION [None]
  - PARENTERAL NUTRITION [None]
  - QUALITY OF LIFE DECREASED [None]
  - FISTULA DISCHARGE [None]
  - GASTROINTESTINAL TUBE INSERTION [None]
